FAERS Safety Report 21254010 (Version 1)
Quarter: 2022Q3

REPORT INFORMATION
  Report Type: Spontaneous
  Country: US (occurrence: None)
  Receive Date: 20220824
  Receipt Date: 20220824
  Transmission Date: 20221026
  Serious: Yes (Other)
  Sender: FDA-Public Use
  Company Number: None

PATIENT
  Age: 52 Year
  Sex: Female
  Weight: 56.25 kg

DRUGS (14)
  1. OXYCODONE [Suspect]
     Active Substance: OXYCODONE
     Indication: Pain management
     Dosage: OTHER QUANTITY : 1 TABLET(S);?FREQUENCY : 3 TIMES A DAY;?
     Route: 048
  2. ARIPIPRAZOLE [Concomitant]
     Active Substance: ARIPIPRAZOLE
  3. OXYBUTYNIN [Concomitant]
     Active Substance: OXYBUTYNIN
  4. LOSARTAN [Concomitant]
     Active Substance: LOSARTAN
  5. BACLOFEN [Concomitant]
     Active Substance: BACLOFEN
  6. VENLAFAXINE [Concomitant]
     Active Substance: VENLAFAXINE HYDROCHLORIDE
  7. PANTOPRAZOLE [Concomitant]
     Active Substance: PANTOPRAZOLE
  8. MONTELUKAST [Concomitant]
     Active Substance: MONTELUKAST SODIUM
  9. CETIRIZINE [Concomitant]
     Active Substance: CETIRIZINE HYDROCHLORIDE
  10. fexofenadine sucralfate [Concomitant]
  11. VITAMIN D3 [Concomitant]
     Active Substance: CHOLECALCIFEROL
  12. calcium/magnesium/zinc [Concomitant]
  13. POTASSIUM [Concomitant]
     Active Substance: POTASSIUM
  14. MMJ [Concomitant]

REACTIONS (4)
  - Product substitution issue [None]
  - Headache [None]
  - Impaired work ability [None]
  - Impaired driving ability [None]

NARRATIVE: CASE EVENT DATE: 20220822
